FAERS Safety Report 12551435 (Version 1)
Quarter: 2016Q3

REPORT INFORMATION
  Report Type: Spontaneous
  Country: NL (occurrence: NL)
  Receive Date: 20160713
  Receipt Date: 20160713
  Transmission Date: 20161109
  Serious: Yes (Death)
  Sender: FDA-Public Use
  Company Number: NL-CIPLA LTD.-2016NL09440

PATIENT

DRUGS (3)
  1. CARLUMAB [Suspect]
     Active Substance: CARLUMAB
     Indication: NEOPLASM
     Dosage: 15 MG/KG, AS A 90-MIN INTRAVENOUS INFUSION EVERY 3 WEEKS
     Route: 042
  2. GEMCITABINE [Suspect]
     Active Substance: GEMCITABINE\GEMCITABINE HYDROCHLORIDE
     Indication: NEOPLASM
     Dosage: UNK, PRIOR THERAPY
     Route: 065
  3. GEMCITABINE [Suspect]
     Active Substance: GEMCITABINE\GEMCITABINE HYDROCHLORIDE
     Dosage: 1000 MG/M2, EVERY 3 WEEKS
     Route: 065

REACTIONS (1)
  - Death [Fatal]
